FAERS Safety Report 12241622 (Version 1)
Quarter: 2016Q2

REPORT INFORMATION
  Report Type: Report from Study
  Country: US (occurrence: US)
  Receive Date: 20160406
  Receipt Date: 20160406
  Transmission Date: 20160815
  Serious: Yes (Hospitalization, Other)
  Sender: FDA-Public Use
  Company Number: US-CORCEPT THERAPEUTICS INC.-US-2015CRT000441

PATIENT

DRUGS (15)
  1. AMILORIDE [Concomitant]
     Active Substance: AMILORIDE
     Indication: PRODUCT USED FOR UNKNOWN INDICATION
     Dosage: UNK
  2. SPIRONOLACTONE. [Concomitant]
     Active Substance: SPIRONOLACTONE
     Indication: PRODUCT USED FOR UNKNOWN INDICATION
     Dosage: UNK
  3. KORLYM [Suspect]
     Active Substance: MIFEPRISTONE
     Dosage: 600 MG, DAILY
     Route: 048
     Dates: start: 20150130, end: 20150225
  4. KORLYM [Suspect]
     Active Substance: MIFEPRISTONE
     Dosage: 900 MG, DAILY
     Route: 048
     Dates: start: 20151229, end: 2016
  5. LISINOPRIL HCTZ [Concomitant]
     Active Substance: HYDROCHLOROTHIAZIDE\LISINOPRIL
     Indication: PRODUCT USED FOR UNKNOWN INDICATION
     Dosage: UNK
  6. KORLYM [Suspect]
     Active Substance: MIFEPRISTONE
     Dosage: 600 MG, DAILY
     Route: 048
     Dates: start: 20150528, end: 20151228
  7. AMLODIPINE [Concomitant]
     Active Substance: AMLODIPINE BESYLATE
     Indication: PRODUCT USED FOR UNKNOWN INDICATION
     Dosage: UNK
  8. LEVEMIR [Concomitant]
     Active Substance: INSULIN DETEMIR
     Indication: PRODUCT USED FOR UNKNOWN INDICATION
     Dosage: UNK
  9. KORLYM [Suspect]
     Active Substance: MIFEPRISTONE
     Dosage: 900 MG, DAILY
     Route: 048
     Dates: start: 20150226, end: 20150527
  10. KORLYM [Suspect]
     Active Substance: MIFEPRISTONE
     Dosage: 600 MG, DAILY
     Route: 048
     Dates: start: 201602
  11. PRAVASTATIN [Concomitant]
     Active Substance: PRAVASTATIN\PRAVASTATIN SODIUM
     Indication: PRODUCT USED FOR UNKNOWN INDICATION
     Dosage: UNK
  12. KORLYM [Suspect]
     Active Substance: MIFEPRISTONE
     Indication: CUSHING^S SYNDROME
     Dosage: 300 MG, DAILY
     Route: 048
     Dates: start: 20150103, end: 20150129
  13. KORLYM [Suspect]
     Active Substance: MIFEPRISTONE
     Dosage: 2 DF, DAILY
     Route: 048
     Dates: start: 20160318
  14. METORMIN [Concomitant]
     Active Substance: METFORMIN HYDROCHLORIDE
     Indication: PRODUCT USED FOR UNKNOWN INDICATION
     Dosage: UNK
  15. NOVOLOG [Concomitant]
     Active Substance: INSULIN ASPART
     Indication: PRODUCT USED FOR UNKNOWN INDICATION
     Dosage: UNK

REACTIONS (3)
  - Blood potassium decreased [Not Recovered/Not Resolved]
  - Blood potassium abnormal [Recovered/Resolved]
  - Blood pressure fluctuation [Recovered/Resolved]

NARRATIVE: CASE EVENT DATE: 20160309
